FAERS Safety Report 9916032 (Version 1)
Quarter: 2014Q1

REPORT INFORMATION
  Report Type: Spontaneous
  Country: GB (occurrence: None)
  Receive Date: 20140219
  Receipt Date: 20140219
  Transmission Date: 20141002
  Serious: Yes (Death)
  Sender: FDA-Public Use
  Company Number: AUR-APL-2014-01628

PATIENT
  Age: 24 Year
  Sex: Male

DRUGS (1)
  1. CITALOPRAM (CITALOPRAM) [Suspect]
     Indication: DEPRESSED MOOD
     Route: 048

REACTIONS (3)
  - Asphyxia [None]
  - Completed suicide [None]
  - Depressed mood [None]
